FAERS Safety Report 16130815 (Version 1)
Quarter: 2019Q1

REPORT INFORMATION
  Report Type: Spontaneous
  Country: IN (occurrence: IN)
  Receive Date: 20190328
  Receipt Date: 20190328
  Transmission Date: 20190418
  Serious: Yes (Other)
  Sender: FDA-Public Use
  Company Number: IN-BAUSCH-BL-2019-008807

PATIENT
  Age: 84 Year
  Sex: Male

DRUGS (1)
  1. IMIQUIMOD. [Suspect]
     Active Substance: IMIQUIMOD
     Indication: SQUAMOUS CELL CARCINOMA
     Dosage: 2 TIMES A DAY, EVERY ALTERNATE DAY
     Route: 061

REACTIONS (3)
  - Conjunctival haemorrhage [Unknown]
  - Conjunctival hyperaemia [Unknown]
  - Erythema [Unknown]
